FAERS Safety Report 7911167-2 (Version None)
Quarter: 2011Q4

REPORT INFORMATION
  Report Type: 
  Country: None (occurrence: None)
  Receive Date: 20111109
  Receipt Date: 20111027
  Transmission Date: 20120403
  Serious: Yes (Other)
  Sender: FDA-Public Use
  Company Number: 2011MA015799

PATIENT
  Age: 36 Year
  Sex: Female

DRUGS (7)
  1. FLUTICASONE PROPIONATE/SALMETEROL [Concomitant]
  2. TRAMADOL HCL [Concomitant]
  3. GABAPENTIN [Suspect]
     Indication: FIBROMYALGIA
     Dosage: 300 MG;BID;PO
     Route: 048
     Dates: start: 20110921, end: 20111005
  4. RANITIDINE [Concomitant]
  5. VENTOLIN [Concomitant]
  6. PEPPERMINT OIL [Concomitant]
  7. FLUOXETINE HCL [Concomitant]

REACTIONS (3)
  - PSYCHOTIC DISORDER [None]
  - HALLUCINATION, AUDITORY [None]
  - SUICIDAL IDEATION [None]
